FAERS Safety Report 25193554 (Version 2)
Quarter: 2025Q2

REPORT INFORMATION
  Report Type: Spontaneous
  Country: JP (occurrence: JP)
  Receive Date: 20250414
  Receipt Date: 20250421
  Transmission Date: 20250717
  Serious: No
  Sender: ALEXION PHARMACEUTICALS
  Company Number: JP-ASTRAZENECA-250034287_011620_P_1

PATIENT

DRUGS (3)
  1. LYNPARZA [Suspect]
     Active Substance: OLAPARIB
     Indication: Malignant peritoneal neoplasm
  2. LYNPARZA [Suspect]
     Active Substance: OLAPARIB
     Indication: Malignant peritoneal neoplasm
  3. LYNPARZA [Suspect]
     Active Substance: OLAPARIB

REACTIONS (13)
  - Malaise [Not Recovered/Not Resolved]
  - Apathy [Not Recovered/Not Resolved]
  - Decreased appetite [Unknown]
  - Fatigue [Unknown]
  - Nausea [Unknown]
  - Feeding disorder [Unknown]
  - Vomiting [Unknown]
  - Blood test abnormal [Unknown]
  - Depression [Unknown]
  - Panic attack [Unknown]
  - Treatment noncompliance [Unknown]
  - Movement disorder [Unknown]
  - Anxiety [Unknown]
